FAERS Safety Report 22521065 (Version 2)
Quarter: 2023Q2

REPORT INFORMATION
  Report Type: Spontaneous
  Country: JP (occurrence: JP)
  Receive Date: 20230605
  Receipt Date: 20230615
  Transmission Date: 20230721
  Serious: Yes (Other)
  Sender: FDA-Public Use
  Company Number: JP-Merck Healthcare KGaA-9404972

PATIENT
  Sex: Male

DRUGS (2)
  1. ERBITUX [Suspect]
     Active Substance: CETUXIMAB
     Indication: Lip and/or oral cavity cancer
     Dosage: UNK UNK, UNKNOWN
     Route: 041
  2. PACLITAXEL [Concomitant]
     Active Substance: PACLITAXEL
     Indication: Lip and/or oral cavity cancer
     Dosage: UNK

REACTIONS (5)
  - Amnesia [Unknown]
  - Abnormal behaviour [Unknown]
  - Visual impairment [Unknown]
  - Road traffic accident [Unknown]
  - Dementia [Unknown]
